FAERS Safety Report 6820093-1 (Version None)
Quarter: 2010Q3

REPORT INFORMATION
  Report Type: 
  Country: None (occurrence: None)
  Receive Date: 20100707
  Receipt Date: 20100707
  Transmission Date: 20110219
  Serious: Yes (Hospitalization)
  Sender: FDA-Public Use
  Company Number: D0068064A

PATIENT
  Sex: Female
  Weight: 50 kg

DRUGS (7)
  1. AVANDIA [Suspect]
     Dosage: 4MG PER DAY
     Route: 048
     Dates: start: 20060101
  2. METFORMIN HCL [Concomitant]
     Dosage: 850MG TWICE PER DAY
     Route: 065
     Dates: start: 20060101
  3. RANITIDINE HCL [Concomitant]
     Route: 065
     Dates: start: 20060101
  4. AMITRIPTYLINE HCL [Concomitant]
     Route: 065
     Dates: start: 20090101
  5. FUROSEMIDE [Concomitant]
     Route: 065
     Dates: start: 20090101
  6. SPIRONOLACTONE [Concomitant]
     Route: 065
     Dates: start: 20090101
  7. BACLOFEN [Concomitant]
     Route: 065
     Dates: start: 20090101

REACTIONS (1)
  - BLOOD SODIUM DECREASED [None]
